FAERS Safety Report 20925836 (Version 3)
Quarter: 2022Q3

REPORT INFORMATION
  Report Type: Spontaneous
  Country: US (occurrence: US)
  Receive Date: 20220607
  Receipt Date: 20220912
  Transmission Date: 20221027
  Serious: Yes (Hospitalization, Other)
  Sender: FDA-Public Use
  Company Number: US-ALXN-A202206635

PATIENT
  Sex: Male

DRUGS (2)
  1. SOLIRIS [Suspect]
     Active Substance: ECULIZUMAB
     Indication: Myasthenia gravis
     Dosage: 1200 MG, Q2W
     Route: 042
     Dates: start: 201807
  2. SOLIRIS [Suspect]
     Active Substance: ECULIZUMAB
     Indication: Autonomic neuropathy

REACTIONS (2)
  - Myasthenia gravis [Unknown]
  - Off label use [Unknown]
